FAERS Safety Report 9796533 (Version 12)
Quarter: 2014Q2

REPORT INFORMATION
  Report Type: Spontaneous
  Country: JP (occurrence: JP)
  Receive Date: 20140103
  Receipt Date: 20140529
  Transmission Date: 20141212
  Serious: Yes (Hospitalization, Other)
  Sender: FDA-Public Use
  Company Number: JP-PFIZER INC-2013370891

PATIENT
  Age: 45 Year
  Sex: Male
  Weight: 75 kg

DRUGS (12)
  1. LIPITOR [Suspect]
     Indication: DYSLIPIDAEMIA
     Dosage: 10 MG, 1X/DAY
     Route: 048
     Dates: start: 20131107, end: 20131218
  2. LIPITOR [Suspect]
     Indication: HYPERLIPIDAEMIA
  3. OLMETEC [Suspect]
     Indication: HYPERTENSION
     Dosage: 10 MG, 1X/DAY
     Route: 048
     Dates: start: 20131119, end: 20131218
  4. NEXIUM [Suspect]
     Indication: PROPHYLAXIS AGAINST GASTROINTESTINAL ULCER
     Dosage: 10 MG, 1X/DAY
     Route: 048
     Dates: start: 20131107, end: 20131218
  5. PLAVIX [Suspect]
     Indication: CEREBRAL THROMBOSIS
     Dosage: 75 MG, 1X/DAY
     Route: 048
     Dates: start: 20131107, end: 20131218
  6. PLAVIX [Suspect]
     Indication: CEREBRAL INFARCTION
  7. METGLUCO [Suspect]
     Indication: DIABETES MELLITUS
     Dosage: 500 MG, 2X/DAY
     Route: 048
     Dates: start: 20131125, end: 20131218
  8. ELCATONIN [Suspect]
     Indication: PROPHYLAXIS
     Dosage: 1 DF (1 AMPULE), 1X/DAY
     Route: 058
     Dates: start: 20131119, end: 20131213
  9. ELCATONIN [Suspect]
     Indication: CERVICOBRACHIAL SYNDROME
  10. LANTUS [Concomitant]
     Dosage: UNK
     Route: 058
     Dates: start: 20131108
  11. BAYASPIRIN [Concomitant]
     Dosage: UNK
     Route: 065
     Dates: end: 20131107
  12. BAYASPIRIN [Concomitant]
     Dosage: UNK
     Dates: start: 20131109, end: 20131116

REACTIONS (18)
  - White blood cell count decreased [Recovering/Resolving]
  - Neutrophil count decreased [Recovering/Resolving]
  - Basophil count increased [Unknown]
  - Blood glucose increased [Unknown]
  - C-reactive protein increased [Unknown]
  - Eosinophil count increased [Unknown]
  - Blood triglycerides increased [Unknown]
  - Glycosylated haemoglobin increased [Unknown]
  - Blood albumin decreased [Unknown]
  - Blood cholesterol decreased [Unknown]
  - Haematocrit decreased [Unknown]
  - Haemoglobin decreased [Unknown]
  - Low density lipoprotein increased [Unknown]
  - Low density lipoprotein decreased [Unknown]
  - Monocyte count increased [Unknown]
  - Platelet count increased [Unknown]
  - Protein total decreased [Unknown]
  - Blood potassium decreased [Unknown]
